FAERS Safety Report 12472055 (Version 1)
Quarter: 2016Q2

REPORT INFORMATION
  Report Type: Spontaneous
  Country: US (occurrence: None)
  Receive Date: 20160615
  Receipt Date: 20160615
  Transmission Date: 20160815
  Serious: Yes (Hospitalization)
  Sender: FDA-Public Use
  Company Number: None

PATIENT
  Age: 74 Year
  Sex: Male
  Weight: 106.4 kg

DRUGS (13)
  1. UROXATRAL [Concomitant]
     Active Substance: ALFUZOSIN HYDROCHLORIDE
  2. THERAGRAN [Concomitant]
     Active Substance: VITAMINS
  3. ANORO ELLIPTA [Concomitant]
     Active Substance: UMECLIDINIUM BROMIDE\VILANTEROL TRIFENATATE
  4. LIPITOR [Concomitant]
     Active Substance: ATORVASTATIN CALCIUM
  5. FISH OIL [Concomitant]
     Active Substance: FISH OIL
  6. K-DUR [Concomitant]
     Active Substance: POTASSIUM CHLORIDE
  7. DELTASONE [Concomitant]
     Active Substance: PREDNISONE
  8. ASPIRIN. [Suspect]
     Active Substance: ASPIRIN
     Indication: CORONARY ARTERY DISEASE
     Dosage: CHRONIC
     Route: 048
  9. PROTONIX [Concomitant]
     Active Substance: PANTOPRAZOLE SODIUM
  10. LASIX [Concomitant]
     Active Substance: FUROSEMIDE
  11. LOTENSIN [Concomitant]
     Active Substance: BENAZEPRIL HYDROCHLORIDE
  12. LOPRESSOR [Concomitant]
     Active Substance: METOPROLOL TARTRATE
  13. ZYLOPRIM [Concomitant]
     Active Substance: ALLOPURINOL

REACTIONS (3)
  - Gastrointestinal arteriovenous malformation [None]
  - Upper gastrointestinal haemorrhage [None]
  - Haemoglobin decreased [None]

NARRATIVE: CASE EVENT DATE: 20150911
